FAERS Safety Report 5275670-9 (Version None)
Quarter: 2007Q1

REPORT INFORMATION
  Report Type: 
  Country: None (occurrence: None)
  Receive Date: 20070326
  Receipt Date: 20070313
  Transmission Date: 20070707
  Serious: Yes (Hospitalization)
  Sender: FDA-Public Use
  Company Number: 2007AP01362

PATIENT
  Age: 73 Year
  Sex: Male
  Weight: 70 kg

DRUGS (10)
  1. DIPRIVAN [Suspect]
     Indication: SEDATION
     Route: 041
     Dates: start: 20051017, end: 20051026
  2. DIPRIVAN [Suspect]
     Dosage: CONTINUOUS ADMINISTRATION
     Route: 041
     Dates: start: 20051101, end: 20051103
  3. DIPRIVAN [Suspect]
     Route: 041
     Dates: start: 20051103, end: 20051104
  4. DIPRIVAN [Suspect]
     Dosage: DOSE INCREASED
     Route: 041
     Dates: start: 20051104, end: 20051104
  5. DORMICUM [Suspect]
     Indication: SEDATION
     Route: 041
     Dates: start: 20051028, end: 20051101
  6. FENTANEST [Concomitant]
     Indication: PAIN
     Route: 041
     Dates: start: 20051017
  7. FENTANEST [Concomitant]
     Route: 041
     Dates: end: 20051103
  8. FENTANEST [Concomitant]
     Dosage: DOSE INCREASED
     Route: 041
     Dates: start: 20051103, end: 20051104
  9. PRECEDEX [Concomitant]
     Indication: SEDATION
     Route: 041
     Dates: start: 20051103, end: 20051104
  10. PRECEDEX [Concomitant]
     Dosage: DOSE INCREASED
     Route: 041
     Dates: start: 20051104, end: 20051104

REACTIONS (1)
  - DRUG WITHDRAWAL SYNDROME [None]
